FAERS Safety Report 9867469 (Version 2)
Quarter: 2014Q1

REPORT INFORMATION
  Report Type: Spontaneous
  Country: FR (occurrence: FR)
  Receive Date: 20140204
  Receipt Date: 20140204
  Transmission Date: 20141002
  Serious: Yes (Hospitalization)
  Sender: FDA-Public Use
  Company Number: FR-PFIZER INC-2014027371

PATIENT
  Age: 86 Year
  Sex: Female

DRUGS (9)
  1. CORDARONE [Suspect]
     Indication: ATRIAL FIBRILLATION
     Dosage: 200 MG, DAILY
     Route: 048
     Dates: start: 2010, end: 201311
  2. ENALAPRIL [Concomitant]
  3. TEMERIT [Concomitant]
  4. PLAVIX [Concomitant]
  5. INEXIUM [Concomitant]
  6. SIMVASTATIN [Concomitant]
  7. SERETIDE [Concomitant]
  8. VENTOLINE [Concomitant]
  9. SERESTA [Concomitant]

REACTIONS (2)
  - Hyperthyroidism [Unknown]
  - Extrapyramidal disorder [Unknown]
